FAERS Safety Report 18520361 (Version 2)
Quarter: 2020Q4

REPORT INFORMATION
  Report Type: Other
  Country: CZ (occurrence: CZ)
  Receive Date: 20201118
  Receipt Date: 20201210
  Transmission Date: 20210114
  Serious: Yes (Death, Hospitalization, Other)
  Sender: FDA-Public Use
  Company Number: CZ-ROCHE-2713009

PATIENT
  Age: 67 Year
  Sex: Female
  Weight: 38.5 kg

DRUGS (29)
  1. POLATUZUMAB VEDOTIN. [Suspect]
     Active Substance: POLATUZUMAB VEDOTIN
     Route: 042
     Dates: start: 20200313
  2. DEXONA [DEXAMETHASONE SODIUM PHOSPHATE] [Suspect]
     Active Substance: DEXAMETHASONE SODIUM PHOSPHATE
     Indication: DIFFUSE LARGE B-CELL LYMPHOMA
     Route: 065
     Dates: start: 20200220
  3. CISPLATIN. [Suspect]
     Active Substance: CISPLATIN
     Indication: DIFFUSE LARGE B-CELL LYMPHOMA
     Route: 065
     Dates: start: 20200220
  4. TAZOCIN [Concomitant]
     Active Substance: PIPERACILLIN SODIUM\TAZOBACTAM SODIUM
     Indication: RASH
  5. POLATUZUMAB VEDOTIN. [Suspect]
     Active Substance: POLATUZUMAB VEDOTIN
     Route: 042
     Dates: start: 20200220
  6. MELPHALAN. [Concomitant]
     Active Substance: MELPHALAN
     Dates: start: 20190525
  7. COTRIMOXAZOLE [Concomitant]
     Active Substance: SULFAMETHOXAZOLE\TRIMETHOPRIM
     Indication: RASH
     Route: 048
  8. MABTHERA [Suspect]
     Active Substance: RITUXIMAB
     Indication: DIFFUSE LARGE B-CELL LYMPHOMA
     Route: 041
     Dates: start: 20191220
  9. MABTHERA [Suspect]
     Active Substance: RITUXIMAB
     Route: 041
     Dates: start: 20200120
  10. MABTHERA [Suspect]
     Active Substance: RITUXIMAB
     Route: 041
     Dates: start: 20200313
  11. CYTARABINE. [Concomitant]
     Active Substance: CYTARABINE
  12. CISPLATIN. [Concomitant]
     Active Substance: CISPLATIN
  13. POLATUZUMAB VEDOTIN. [Suspect]
     Active Substance: POLATUZUMAB VEDOTIN
     Route: 042
     Dates: start: 20200120
  14. BENDAMUSTINE [Suspect]
     Active Substance: BENDAMUSTINE
     Indication: PRODUCT USED FOR UNKNOWN INDICATION
     Route: 065
     Dates: start: 20191220
  15. VEROSPIRON [Concomitant]
     Active Substance: SPIRONOLACTONE
     Route: 048
  16. GEMCITABINE. [Suspect]
     Active Substance: GEMCITABINE
     Indication: DIFFUSE LARGE B-CELL LYMPHOMA
     Route: 065
     Dates: start: 20200220
  17. SOLU-MEDRONE [Concomitant]
     Active Substance: METHYLPREDNISOLONE SODIUM SUCCINATE
  18. CARMUSTINE. [Concomitant]
     Active Substance: CARMUSTINE
     Dates: start: 20190525
  19. KALIUM CHLORATUM [Concomitant]
     Active Substance: POTASSIUM CHLORIDE
     Indication: RASH
     Route: 048
  20. ZARZIO [Concomitant]
     Active Substance: FILGRASTIM
     Route: 058
  21. BLINCYTO [Concomitant]
     Active Substance: BLINATUMOMAB
     Indication: DIFFUSE LARGE B-CELL LYMPHOMA
     Dates: start: 20191017
  22. POLATUZUMAB VEDOTIN. [Suspect]
     Active Substance: POLATUZUMAB VEDOTIN
     Indication: PRODUCT USED FOR UNKNOWN INDICATION
     Route: 042
     Dates: start: 20191220
  23. ETOPOSIDE. [Concomitant]
     Active Substance: ETOPOSIDE
  24. CYTARABINE. [Concomitant]
     Active Substance: CYTARABINE
     Dates: start: 20190525
  25. GRANEGIS [Concomitant]
     Active Substance: GRANISETRON HYDROCHLORIDE
     Indication: NAUSEA
     Dosage: 1 TBL IN CASE OF NAUSEA, MAX. EVERY 12 HOURS
     Route: 048
  26. MABTHERA [Suspect]
     Active Substance: RITUXIMAB
     Route: 041
     Dates: start: 20200220
  27. GEMZAR [Suspect]
     Active Substance: GEMCITABINE HYDROCHLORIDE
     Indication: DIFFUSE LARGE B-CELL LYMPHOMA
     Route: 065
     Dates: start: 20200220
  28. HERPESIN [Concomitant]
     Active Substance: ACYCLOVIR
     Indication: RASH
     Route: 048
  29. FRAXIPARINE [Concomitant]
     Active Substance: NADROPARIN CALCIUM
     Route: 058

REACTIONS (23)
  - Abscess [Recovered/Resolved]
  - Hypotension [Unknown]
  - Abdominal pain [Unknown]
  - Eating disorder [Unknown]
  - Tongue coated [Unknown]
  - Tongue disorder [Unknown]
  - Neutropenia [Unknown]
  - Cough [Unknown]
  - Dry mouth [Unknown]
  - Gastroenteritis [Unknown]
  - Diarrhoea [Unknown]
  - Colitis [Recovered/Resolved]
  - Dehydration [Unknown]
  - Weight decreased [Unknown]
  - Pulmonary oedema [Unknown]
  - Clostridium colitis [Recovered/Resolved]
  - Hypokalaemia [Recovered/Resolved]
  - Vomiting [Unknown]
  - Tongue dry [Unknown]
  - Infection [Fatal]
  - Pneumonia [Not Recovered/Not Resolved]
  - Cytopenia [Unknown]
  - Dry skin [Unknown]

NARRATIVE: CASE EVENT DATE: 20200110
